FAERS Safety Report 14593079 (Version 2)
Quarter: 2019Q1

REPORT INFORMATION
  Report Type: Spontaneous
  Country: US (occurrence: US)
  Receive Date: 20180302
  Receipt Date: 20190219
  Transmission Date: 20190417
  Serious: No
  Sender: FDA-Public Use
  Company Number: US-ENDO PHARMACEUTICALS INC-2018-014153

PATIENT
  Age: 56 Year
  Sex: Male
  Weight: 79.37 kg

DRUGS (4)
  1. XIAFLEX [Suspect]
     Active Substance: COLLAGENASE CLOSTRIDIUM HISTOLYTICUM
     Indication: DUPUYTREN^S CONTRACTURE
     Dosage: UNK, SINGLE, INJECTION INTO CORD AFFECTING PINKIE FINGER OF RIGHT HAND AND RIGHT HAND
     Route: 026
     Dates: start: 20170328
  2. XIAFLEX [Suspect]
     Active Substance: COLLAGENASE CLOSTRIDIUM HISTOLYTICUM
     Indication: NODULE
     Dosage: UNK, SINGLE, INJECTION INTO PINKIE FINGER OF RIGHT HAND AND NODULE BELOW SAME PINKIE FINGER IN PALM
     Route: 026
     Dates: start: 20170522
  3. XIAFLEX [Suspect]
     Active Substance: COLLAGENASE CLOSTRIDIUM HISTOLYTICUM
     Dosage: UNK, SINGLE, INJECTION IN RIGHT HAND
     Route: 026
     Dates: start: 2018
  4. XIAFLEX [Suspect]
     Active Substance: COLLAGENASE CLOSTRIDIUM HISTOLYTICUM
     Dosage: UNK, SINGLE, INJECTION CLOSER TO PINKY FINGER THAN PREVIOUS INJECTION ON RIGHT HAND
     Route: 026
     Dates: start: 2018

REACTIONS (7)
  - Peripheral swelling [Unknown]
  - Dupuytren^s contracture [Unknown]
  - Injection site inflammation [Recovered/Resolved]
  - Discomfort [Unknown]
  - Injection site pain [Recovered/Resolved]
  - Injection site pain [Unknown]
  - Underdose [Recovered/Resolved]

NARRATIVE: CASE EVENT DATE: 20170328
